FAERS Safety Report 23307673 (Version 3)
Quarter: 2024Q1

REPORT INFORMATION
  Report Type: Report from Study
  Country: ES (occurrence: ES)
  Receive Date: 20231218
  Receipt Date: 20240103
  Transmission Date: 20240410
  Serious: Yes (Other)
  Sender: FDA-Public Use
  Company Number: ES-PFIZER INC-202300444324

PATIENT
  Age: 40 Year
  Sex: Male

DRUGS (6)
  1. NIRMATRELVIR\RITONAVIR [Interacting]
     Active Substance: NIRMATRELVIR\RITONAVIR
     Indication: COVID-19 treatment
     Dosage: 150 MG OF NIRMATRELVIR PLUS 100 MG OF RITONAVIR
  2. TACROLIMUS [Interacting]
     Active Substance: TACROLIMUS
     Indication: Renal transplant
     Dosage: 6 MG, BASELINE DAILY DOSE
  3. TACROLIMUS [Interacting]
     Active Substance: TACROLIMUS
     Dosage: 4 MG, DAILY (REINTRODUCTION DAILY DOSE ON DAY 4)
  4. TACROLIMUS [Interacting]
     Active Substance: TACROLIMUS
     Dosage: 6 MG, DAILY, RETURN TO THE USUAL REGIMEN
  5. TACROLIMUS [Interacting]
     Active Substance: TACROLIMUS
     Dosage: 4 MG, DAILY
  6. TACROLIMUS [Interacting]
     Active Substance: TACROLIMUS
     Dosage: 6 MG, DAILY, RETURN TO BASELINE REGIMEN

REACTIONS (2)
  - Drug interaction [Unknown]
  - Drug level above therapeutic [Unknown]
